FAERS Safety Report 5013966-6 (Version None)
Quarter: 2006Q2

REPORT INFORMATION
  Report Type: 
  Country: None (occurrence: None)
  Receive Date: 20060525
  Receipt Date: 20060508
  Transmission Date: 20061013
  Serious: Yes (Other)
  Sender: FDA-Public Use
  Company Number: US200604003166

PATIENT
  Age: 83 Year
  Sex: Female

DRUGS (6)
  1. EVISTA [Suspect]
     Indication: OSTEOPOROSIS
     Dosage: 60 MG, UNK, ORAL
     Route: 048
  2. PLAVIX [Concomitant]
  3. METHOTREXATE [Concomitant]
  4. PRAVACHOL [Concomitant]
  5. DARVOCET-N 100 [Concomitant]
  6. PREDNISONE TAB [Concomitant]

REACTIONS (2)
  - COMPRESSION FRACTURE [None]
  - THORACIC VERTEBRAL FRACTURE [None]
